FAERS Safety Report 7405272-7 (Version None)
Quarter: 2011Q2

REPORT INFORMATION
  Report Type: 
  Country: None (occurrence: None)
  Receive Date: 20110411
  Receipt Date: 20110330
  Transmission Date: 20111010
  Serious: Yes (Hospitalization)
  Sender: FDA-Public Use
  Company Number: US-AMGEN-USASP2011017230

PATIENT
  Age: 57 Year
  Sex: Female

DRUGS (3)
  1. PROCRIT [Suspect]
     Indication: HAEMOGLOBIN DECREASED
  2. ENBREL [Suspect]
     Indication: RHEUMATOID ARTHRITIS
     Dosage: 50 MG, QWK
     Dates: start: 20090316, end: 20110201
  3. METHOTREXATE [Concomitant]
     Dates: start: 19800101

REACTIONS (3)
  - JOINT DESTRUCTION [None]
  - RHEUMATOID ARTHRITIS [None]
  - RED BLOOD CELL COUNT DECREASED [None]
